FAERS Safety Report 6528257-1 (Version None)
Quarter: 2010Q1

REPORT INFORMATION
  Report Type: 
  Country: None (occurrence: None)
  Receive Date: 20100105
  Receipt Date: 20100105
  Transmission Date: 20100710
  Serious: Yes (Other)
  Sender: FDA-Public Use
  Company Number: None

PATIENT
  Age: 59 Year
  Sex: Male
  Weight: 111.1313 kg

DRUGS (2)
  1. HYDROCODONE BITARTRATE AND ACETAMINOPHEN [Suspect]
     Dosage: 1 TO 2 4-6 HOURS PO
     Route: 048
     Dates: start: 20091011, end: 20091231
  2. HYDROCODONE BITARTRATE AND ACETAMINOPHEN [Suspect]

REACTIONS (3)
  - DRUG EFFECT INCREASED [None]
  - DRUG INEFFECTIVE [None]
  - PRODUCT SUBSTITUTION ISSUE [None]
